FAERS Safety Report 11374936 (Version 9)
Quarter: 2019Q2

REPORT INFORMATION
  Report Type: Report from Study
  Country: US (occurrence: US)
  Receive Date: 20150813
  Receipt Date: 20190624
  Transmission Date: 20190711
  Serious: Yes (Other)
  Sender: FDA-Public Use
  Company Number: PHHY2015US070685

PATIENT
  Age: 35 Year
  Sex: Male

DRUGS (1)
  1. GILENYA [Suspect]
     Active Substance: FINGOLIMOD HYDROCHLORIDE
     Indication: MULTIPLE SCLEROSIS
     Dosage: QD
     Route: 048

REACTIONS (14)
  - Balance disorder [Unknown]
  - Bowel movement irregularity [Unknown]
  - Ligament sprain [Unknown]
  - Blindness unilateral [Unknown]
  - Lymphocyte count decreased [Unknown]
  - Vision blurred [Unknown]
  - Tendonitis [Unknown]
  - Alanine aminotransferase increased [Unknown]
  - Urinary tract infection [Unknown]
  - Ingrowing nail [Unknown]
  - White blood cell count decreased [Unknown]
  - Aspartate aminotransferase increased [Unknown]
  - Gait disturbance [Unknown]
  - Fatigue [Unknown]

NARRATIVE: CASE EVENT DATE: 20140717
